FAERS Safety Report 13306445 (Version 1)
Quarter: 2017Q1

REPORT INFORMATION
  Report Type: Spontaneous
  Country: US (occurrence: US)
  Receive Date: 20170308
  Receipt Date: 20170308
  Transmission Date: 20170428
  Serious: Yes (Disabling, Other)
  Sender: FDA-Public Use
  Company Number: US-REGENERON PHARMACEUTICALS, INC.-2017-10099

PATIENT

DRUGS (4)
  1. EYLEA [Suspect]
     Active Substance: AFLIBERCEPT
     Indication: NEOVASCULAR AGE-RELATED MACULAR DEGENERATION
     Dosage: 2 MG MILLIGRAM(S), Q4 WEEKS, EXTENDED TO Q6 WEEKS
     Route: 031
     Dates: end: 20170123
  2. OCUVITE [Concomitant]
     Active Substance: VITAMINS
     Indication: PRODUCT USED FOR UNKNOWN INDICATION
  3. LATANOPROST. [Concomitant]
     Active Substance: LATANOPROST
     Indication: PRODUCT USED FOR UNKNOWN INDICATION
     Dosage: OU, QHS (OS ON HOLD DUE TO LOW IOP)
  4. ATROPINE. [Concomitant]
     Active Substance: ATROPINE
     Dosage: 1%, OS

REACTIONS (5)
  - Vitreous floaters [Unknown]
  - Hypotony of eye [Unknown]
  - Non-infectious endophthalmitis [Not Recovered/Not Resolved]
  - Blindness unilateral [Unknown]
  - Eye pain [Not Recovered/Not Resolved]

NARRATIVE: CASE EVENT DATE: 20170124
